FAERS Safety Report 20992373 (Version 1)
Quarter: 2022Q2

REPORT INFORMATION
  Report Type: Spontaneous
  Country: US (occurrence: None)
  Receive Date: 20220621
  Receipt Date: 20220621
  Transmission Date: 20220720
  Serious: Yes (Disabling)
  Sender: FDA-Public Use
  Company Number: None

PATIENT
  Age: 71 Year
  Sex: Female
  Weight: 72 kg

DRUGS (17)
  1. PAXLOVID [Suspect]
     Active Substance: NIRMATRELVIR\RITONAVIR
     Indication: COVID-19
     Dosage: OTHER QUANTITY : 3 TABLET(S);?FREQUENCY : EVERY 12 HOURS;?
     Route: 048
     Dates: start: 20220620, end: 20220620
  2. LISINOPRIL [Concomitant]
     Active Substance: LISINOPRIL
  3. SIMVASTATIN [Concomitant]
     Active Substance: SIMVASTATIN
  4. VITAMINS [Concomitant]
     Active Substance: VITAMINS
  5. C [Concomitant]
  6. VITAMIN D3 [Concomitant]
     Active Substance: CHOLECALCIFEROL
  7. COQ-10 [Concomitant]
  8. ENTERIC ASPIRIN [Concomitant]
  9. FLAXSEED [Concomitant]
     Active Substance: FLAX SEED
  10. FISH OIL [Concomitant]
     Active Substance: FISH OIL
  11. HERBALS\TURMERIC [Concomitant]
     Active Substance: HERBALS\TURMERIC
  12. CALCIUM [Concomitant]
     Active Substance: CALCIUM
  13. CYRUTA [Concomitant]
  14. MIN CHEX [Concomitant]
  15. CONGAPLEX [Concomitant]
  16. Panreatrophin [Concomitant]
  17. MULTIZYME [Concomitant]

REACTIONS (6)
  - Dysgeusia [None]
  - Chest pain [None]
  - Pain in jaw [None]
  - Diarrhoea [None]
  - Abdominal pain upper [None]
  - Tongue discolouration [None]

NARRATIVE: CASE EVENT DATE: 20220621
